FAERS Safety Report 25961127 (Version 1)
Quarter: 2025Q4

REPORT INFORMATION
  Report Type: Spontaneous
  Country: EU (occurrence: EU)
  Receive Date: 20251027
  Receipt Date: 20251027
  Transmission Date: 20260118
  Serious: Yes (Life-Threatening, Hospitalization, Other)
  Sender: Medicap Laboratories
  Company Number: EU-Medicap-000092

PATIENT
  Age: 33 Year
  Sex: Male

DRUGS (2)
  1. VENLAFAXINE [Suspect]
     Active Substance: VENLAFAXINE HYDROCHLORIDE
     Indication: Product used for unknown indication
     Dosage: 4.5 G OF VENLAFAXINE
     Route: 065
  2. QUETIAPINE [Suspect]
     Active Substance: QUETIAPINE
     Indication: Product used for unknown indication
     Dosage: 12 G OF QUETIAPINE
     Route: 065

REACTIONS (7)
  - Circulatory collapse [Recovered/Resolved]
  - Condition aggravated [Recovered/Resolved]
  - Toxicity to various agents [Recovered/Resolved]
  - Coma [Recovered/Resolved]
  - Generalised tonic-clonic seizure [Recovered/Resolved]
  - Intentional overdose [Recovered/Resolved]
  - Suicide attempt [Recovered/Resolved]
